FAERS Safety Report 13869769 (Version 1)
Quarter: 2017Q3

REPORT INFORMATION
  Report Type: Spontaneous
  Country: US (occurrence: US)
  Receive Date: 20170815
  Receipt Date: 20170815
  Transmission Date: 20171127
  Serious: No
  Sender: FDA-Public Use
  Company Number: US-PFIZER INC-2017350302

PATIENT
  Age: 62 Year
  Sex: Female

DRUGS (11)
  1. GABAPENTIN. [Concomitant]
     Active Substance: GABAPENTIN
     Dosage: UNK
  2. NEULASTA [Concomitant]
     Active Substance: PEGFILGRASTIM
     Dosage: UNK
  3. LOSARTAN. [Concomitant]
     Active Substance: LOSARTAN
     Dosage: UNK
     Dates: start: 20150101
  4. OXYCODONE [Concomitant]
     Active Substance: OXYCODONE
     Dosage: UNK
  5. ESTRADIOL. [Concomitant]
     Active Substance: ESTRADIOL
     Dosage: UNK
     Dates: start: 20000101
  6. CALCIUM [Concomitant]
     Active Substance: CALCIUM
     Dosage: UNK
     Dates: start: 20010101
  7. DOCETAXEL. [Suspect]
     Active Substance: DOCETAXEL
     Indication: BREAST CANCER FEMALE
  8. CEPHALEXIN. [Concomitant]
     Active Substance: CEPHALEXIN
     Dosage: UNK
  9. DOCETAXEL. [Suspect]
     Active Substance: DOCETAXEL
     Indication: CHEMOTHERAPY
     Dosage: 143 MG, EVERY 3 WEEKS, THREE CYCLES
     Dates: start: 20151218, end: 20160128
  10. NEOSAR [Concomitant]
     Active Substance: CYCLOPHOSPHAMIDE
     Indication: CHEMOTHERAPY
     Dosage: UNK
  11. LETROZOLE. [Concomitant]
     Active Substance: LETROZOLE
     Dosage: UNK

REACTIONS (5)
  - Hair texture abnormal [Recovered/Resolved]
  - Hair colour changes [Recovered/Resolved]
  - Alopecia [Recovered/Resolved]
  - Hair disorder [Recovered/Resolved]
  - Madarosis [Recovered/Resolved]

NARRATIVE: CASE EVENT DATE: 20161001
